FAERS Safety Report 22217533 (Version 1)
Quarter: 2023Q2

REPORT INFORMATION
  Report Type: Spontaneous
  Country: FR (occurrence: FR)
  Receive Date: 20230417
  Receipt Date: 20230417
  Transmission Date: 20230721
  Serious: Yes (Death, Other)
  Sender: FDA-Public Use
  Company Number: FR-AFSSAPS-LM2023000219

PATIENT
  Age: 72 Year
  Sex: Male

DRUGS (4)
  1. IRINOTECAN [Suspect]
     Active Substance: IRINOTECAN
     Indication: Colorectal cancer
     Dosage: 300 MILLIGRAM, 1 TOTAL
     Route: 042
     Dates: start: 20230316, end: 20230316
  2. FLUOROURACIL [Suspect]
     Active Substance: FLUOROURACIL
     Indication: Colorectal cancer
     Dosage: 4 GRAM, 1 TOTAL
     Route: 042
     Dates: start: 20230316, end: 20230316
  3. INNOHEP [Suspect]
     Active Substance: TINZAPARIN SODIUM
     Indication: Atrial flutter
     Dosage: 19000 INTERNATIONAL UNIT, ONCE A DAY
     Route: 058
  4. ZALTRAP [Suspect]
     Active Substance: ZIV-AFLIBERCEPT
     Indication: Colorectal cancer
     Dosage: 392 MILLIGRAM, CYCLICAL
     Route: 042
     Dates: start: 20230316, end: 20230316

REACTIONS (1)
  - Shock haemorrhagic [Fatal]

NARRATIVE: CASE EVENT DATE: 20230330
